FAERS Safety Report 9972266 (Version 1)
Quarter: 2014Q1

REPORT INFORMATION
  Report Type: Spontaneous
  Country: PL (occurrence: None)
  Receive Date: 20140304
  Receipt Date: 20140304
  Transmission Date: 20141002
  Serious: Yes (Hospitalization)
  Sender: FDA-Public Use
  Company Number: 2014P1001643

PATIENT
  Age: 31 Year
  Sex: Male

DRUGS (5)
  1. CHLOROQUINE [Suspect]
     Indication: SYSTEMIC LUPUS ERYTHEMATOSUS
  2. METHYLPREDNISOLONE [Concomitant]
  3. SULPIRIDE [Concomitant]
  4. QUETIAPINE [Concomitant]
  5. LAMOTRIGINE [Concomitant]

REACTIONS (14)
  - Systemic lupus erythematosus [None]
  - Psychomotor retardation [None]
  - Feelings of worthlessness [None]
  - Decreased interest [None]
  - Agitation [None]
  - Suicidal ideation [None]
  - Major depression [None]
  - Blood cholesterol increased [None]
  - Low density lipoprotein increased [None]
  - Platelet count decreased [None]
  - Arthritis [None]
  - Hallucinations, mixed [None]
  - Mania [None]
  - Bipolar disorder [None]
